FAERS Safety Report 21679263 (Version 1)
Quarter: 2022Q4

REPORT INFORMATION
  Report Type: Spontaneous
  Country: SK (occurrence: SK)
  Receive Date: 20221205
  Receipt Date: 20221205
  Transmission Date: 20230113
  Serious: Yes (Hospitalization, Other)
  Sender: FDA-Public Use
  Company Number: SK-SUN PHARMACEUTICAL INDUSTRIES LTD-2022R1-364898

PATIENT
  Age: 12 Year
  Sex: Female
  Weight: 50 kg

DRUGS (8)
  1. DUAC [Suspect]
     Active Substance: BENZOYL PEROXIDE\CLINDAMYCIN PHOSPHATE
     Indication: Acne
     Dosage: UNK
     Route: 061
  2. ISOTRETINOIN [Suspect]
     Active Substance: ISOTRETINOIN
     Indication: Acne
     Dosage: 40 MILLIGRAM, QD
     Route: 048
     Dates: start: 202201
  3. ISOTRETINOIN [Suspect]
     Active Substance: ISOTRETINOIN
     Dosage: 10 MILLIGRAM, QD
     Route: 048
     Dates: start: 202201
  4. ISOTRETINOIN [Suspect]
     Active Substance: ISOTRETINOIN
     Dosage: ALTERNATING DAILY DOSES OF 10 AND 20 MG UNK
     Route: 048
  5. CLINDAMYCIN [Suspect]
     Active Substance: CLINDAMYCIN
     Indication: Acne
     Dosage: 300 MILLIGRAM, TID
     Route: 048
  6. ADAPALENE [Concomitant]
     Active Substance: ADAPALENE
     Indication: Acne
  7. ERYTHROMYCIN [Concomitant]
     Active Substance: ERYTHROMYCIN
     Indication: Acne
  8. AZITHROMYCIN [Concomitant]
     Active Substance: AZITHROMYCIN
     Indication: Acne
     Dosage: UNK
     Route: 065

REACTIONS (21)
  - Acne fulminans [Recovered/Resolved]
  - Condition aggravated [Unknown]
  - Drug eruption [Recovered/Resolved]
  - Pustule [Recovered/Resolved]
  - Skin erosion [Recovered/Resolved]
  - Pain of skin [Recovered/Resolved]
  - Skin lesion [Recovered/Resolved with Sequelae]
  - Ulcer haemorrhage [Recovered/Resolved with Sequelae]
  - Headache [Recovered/Resolved]
  - Dizziness [Recovered/Resolved]
  - Muscle spasms [Recovered/Resolved]
  - Arthralgia [Recovered/Resolved]
  - Fatigue [Recovered/Resolved]
  - Pyrexia [Recovered/Resolved]
  - Loss of consciousness [Recovered/Resolved]
  - Mental fatigue [Recovered/Resolved]
  - Social avoidant behaviour [Recovered/Resolved]
  - Leukocytosis [Recovered/Resolved]
  - Neutrophilia [Recovered/Resolved]
  - Mental impairment [Recovered/Resolved]
  - Urticaria [Recovered/Resolved]
